FAERS Safety Report 5690897-X (Version None)
Quarter: 2008Q2

REPORT INFORMATION
  Report Type: 
  Country: None (occurrence: None)
  Receive Date: 20080401
  Receipt Date: 20080325
  Transmission Date: 20081010
  Serious: Yes (Disabling)
  Sender: FDA-Public Use
  Company Number: FR-ASTRAZENECA-2007CG01112

PATIENT
  Age: 27831 Day
  Sex: Female

DRUGS (3)
  1. FASLODEX [Suspect]
     Indication: BREAST CANCER
     Route: 030
     Dates: start: 20041108
  2. UFT [Concomitant]
     Dates: start: 20070820
  3. XELODA [Concomitant]

REACTIONS (1)
  - COMPLEX REGIONAL PAIN SYNDROME [None]
